FAERS Safety Report 4570586-5 (Version None)
Quarter: 2005Q1

REPORT INFORMATION
  Report Type: 
  Country: None (occurrence: None)
  Receive Date: 20050202
  Receipt Date: 20050124
  Transmission Date: 20050727
  Serious: No
  Sender: FDA-Public Use
  Company Number: 2005GB00174

PATIENT
  Age: 95 Year
  Sex: Female

DRUGS (6)
  1. QUETIAPINE [Suspect]
     Indication: AGITATION
     Dosage: 25-12.5 MG ON
     Dates: end: 20041227
  2. ATENOLOL [Concomitant]
  3. SENNA [Concomitant]
  4. TEMAZEPAM [Concomitant]
  5. AMOXICILLIN TRIHYDRATE [Concomitant]
  6. HALOPERIDOL [Concomitant]

REACTIONS (2)
  - SOMNOLENCE [None]
  - THROMBOCYTOPENIA [None]
